FAERS Safety Report 7860082-1 (Version None)
Quarter: 2011Q4

REPORT INFORMATION
  Report Type: 
  Country: None (occurrence: None)
  Receive Date: 20111026
  Receipt Date: 20111017
  Transmission Date: 20120403
  Serious: Yes (Death, Hospitalization)
  Sender: FDA-Public Use
  Company Number: FK201102279

PATIENT
  Age: 68 Year
  Sex: Female

DRUGS (10)
  1. LEVAQUIN [Concomitant]
  2. VELCADE [Suspect]
     Indication: MULTIPLE MYELOMA
     Dosage: 3.2 MG, INTRAVENOUS PUSH EVERY 1 WEEK, INTRAVENOUS (NOT OTHERWISE SPECIFIED)
     Route: 042
     Dates: start: 20110412, end: 20110713
  3. VANCOMYCIN [Concomitant]
  4. HYDROCODONE BITARTRATE [Concomitant]
  5. TRIAMTERENE (TRIAMTERENE) [Concomitant]
  6. ACETAMINOPHEN [Concomitant]
  7. PROTONIX [Concomitant]
  8. DEXAMETHASONE SODIUM PHOSPHATE [Suspect]
     Indication: MULTIPLE MYELOMA
     Dosage: 20 MG, DAILY FOR 1 DAY, INTRAVENOUS (NOT OTHERWISE SPECIFIED)
     Route: 042
     Dates: start: 20110404, end: 20110713
  9. RENVELA [Concomitant]
  10. HYDROCHLOROTHIAZIDE [Concomitant]

REACTIONS (1)
  - SEPTIC SHOCK [None]
